FAERS Safety Report 4578006-1 (Version None)
Quarter: 2005Q1

REPORT INFORMATION
  Report Type: 
  Country: None (occurrence: None)
  Receive Date: 20050209
  Receipt Date: 20050127
  Transmission Date: 20050727
  Serious: Yes (Other)
  Sender: FDA-Public Use
  Company Number: 2005010577

PATIENT
  Age: 29 Year
  Sex: Male

DRUGS (4)
  1. VIAGRA [Suspect]
     Indication: PULMONARY HYPERTENSION
     Dosage: 150 MG (50 MG,3 IN 1 D); ORAL
     Route: 048
     Dates: start: 20040601, end: 20041220
  2. WARFARIN SODIUM [Concomitant]
  3. CARVEDILOL [Concomitant]
  4. CLONAZEPAM [Concomitant]

REACTIONS (7)
  - BRAIN NATRIURETIC PEPTIDE INCREASED [None]
  - DIARRHOEA [None]
  - FATIGUE [None]
  - HEADACHE [None]
  - OEDEMA PERIPHERAL [None]
  - SKIN LESION [None]
  - TACHYCARDIA [None]
